FAERS Safety Report 5778732-2 (Version None)
Quarter: 2008Q2

REPORT INFORMATION
  Report Type: 
  Country: None (occurrence: None)
  Receive Date: 20080617
  Receipt Date: 20080605
  Transmission Date: 20081010
  Serious: Yes (Other)
  Sender: FDA-Public Use
  Company Number: 027244

PATIENT
  Age: 25 Year
  Sex: Female

DRUGS (2)
  1. CLARAVIS [Suspect]
     Indication: ACNE
     Dosage: 40 MG, QD, ORAL
     Route: 048
     Dates: start: 20080130
  2. ORAL CONTRACEPTIVES [Concomitant]

REACTIONS (1)
  - THORACIC OUTLET SYNDROME [None]
